FAERS Safety Report 9408112 (Version 1)
Quarter: 2013Q3

REPORT INFORMATION
  Report Type: Spontaneous
  Country: TR (occurrence: TR)
  Receive Date: 20130718
  Receipt Date: 20130718
  Transmission Date: 20140515
  Serious: No
  Sender: FDA-Public Use
  Company Number: TR-009507513-1307TUR006787

PATIENT
  Sex: Female

DRUGS (1)
  1. SYCREST [Suspect]

REACTIONS (7)
  - Hypersensitivity [Recovered/Resolved]
  - Drug withdrawal syndrome [Unknown]
  - Anxiety [Not Recovered/Not Resolved]
  - Depression [Not Recovered/Not Resolved]
  - Insomnia [Recovered/Resolved]
  - Therapeutic response decreased [Unknown]
  - Restless legs syndrome [Unknown]
